FAERS Safety Report 7546310-0 (Version None)
Quarter: 2011Q2

REPORT INFORMATION
  Report Type: 
  Country: None (occurrence: None)
  Receive Date: 20110614
  Receipt Date: 20041006
  Transmission Date: 20111010
  Serious: Yes (Other)
  Sender: FDA-Public Use
  Company Number: PHHO2004AT14066

PATIENT
  Sex: Male

DRUGS (6)
  1. OXAZEPAM [Concomitant]
  2. DEPAKENE [Concomitant]
  3. RISPERDAL [Concomitant]
  4. LORAZEPAM [Concomitant]
  5. CLOZAPINE [Suspect]
  6. ARIPIPRAZOLE [Suspect]

REACTIONS (2)
  - AGITATION [None]
  - HOMICIDAL IDEATION [None]
